FAERS Safety Report 5341367-X (Version None)
Quarter: 2007Q2

REPORT INFORMATION
  Report Type: 
  Country: None (occurrence: None)
  Receive Date: 20070404
  Receipt Date: 20061102
  Transmission Date: 20071010
  Serious: Yes (Other)
  Sender: FDA-Public Use
  Company Number: 2006134853

PATIENT
  Sex: Female
  Weight: 68.0396 kg

DRUGS (1)
  1. GEODON [Suspect]
     Indication: DEPRESSION
     Dosage: 120 MG (60 MG,2 IN 1 D)
     Dates: start: 20030401

REACTIONS (1)
  - TARDIVE DYSKINESIA [None]
